FAERS Safety Report 11990457 (Version 1)
Quarter: 2016Q1

REPORT INFORMATION
  Report Type: Spontaneous
  Country: FR (occurrence: FR)
  Receive Date: 20160202
  Receipt Date: 20160202
  Transmission Date: 20160526
  Serious: Yes (Hospitalization)
  Sender: FDA-Public Use
  Company Number: FR-ABBVIE-16P-056-1547636-00

PATIENT
  Age: 30 Year
  Sex: Female

DRUGS (1)
  1. KALETRA [Suspect]
     Active Substance: LOPINAVIR\RITONAVIR
     Indication: EXPOSURE VIA BLOOD
     Route: 048
     Dates: start: 20151126, end: 20151216

REACTIONS (3)
  - Jaundice cholestatic [Recovered/Resolved]
  - Hepatocellular injury [Recovered/Resolved]
  - Influenza like illness [Recovered/Resolved]

NARRATIVE: CASE EVENT DATE: 20151216
